FAERS Safety Report 14922611 (Version 1)
Quarter: 2018Q2

REPORT INFORMATION
  Report Type: Spontaneous
  Country: BE (occurrence: BE)
  Receive Date: 20180522
  Receipt Date: 20180522
  Transmission Date: 20180711
  Serious: Yes (Other)
  Sender: FDA-Public Use
  Company Number: BE-WEST-WARD PHARMACEUTICALS CORP.-BE-H14001-18-04089

PATIENT
  Age: 70 Year
  Sex: Male
  Weight: 51 kg

DRUGS (2)
  1. CARBOPLATIN. [Suspect]
     Active Substance: CARBOPLATIN
     Indication: PLEURAL MESOTHELIOMA
     Dosage: UNK ()
     Route: 065
     Dates: start: 201711, end: 201803
  2. VINORELBINE [Suspect]
     Active Substance: VINORELBINE\VINORELBINE TARTRATE
     Indication: PLEURAL MESOTHELIOMA
     Dosage: UNK ()
     Route: 065
     Dates: start: 201711, end: 201803

REACTIONS (2)
  - Malignant neoplasm progression [Unknown]
  - Off label use [Unknown]

NARRATIVE: CASE EVENT DATE: 201803
